FAERS Safety Report 4355514-X (Version None)
Quarter: 2004Q2

REPORT INFORMATION
  Report Type: 
  Country: None (occurrence: None)
  Receive Date: 20040503
  Receipt Date: 20030606
  Transmission Date: 20050107
  Serious: Yes (Other)
  Sender: FDA-Public Use
  Company Number: PHEH2003US04858

PATIENT
  Sex: Male

DRUGS (2)
  1. LOTREL [Suspect]
  2. ADVICOR-SLOW RELEASE [Concomitant]

REACTIONS (2)
  - BIOPSY BREAST [None]
  - GYNAECOMASTIA [None]
